FAERS Safety Report 6921294 (Version 2)
Quarter: 2018Q2

REPORT INFORMATION
  Report Type: Spontaneous
  Country: DE (occurrence: DE)
  Receive Date: 20090226
  Receipt Date: 20180625
  Transmission Date: 20180711
  Serious: Yes (Other)
  Sender: FDA-Public Use
  Company Number: PHBS2009DE00857

PATIENT
  Age: 52 Year
  Sex: Female

DRUGS (3)
  1. IMATINIB [Suspect]
     Active Substance: IMATINIB
     Indication: CHRONIC MYELOID LEUKAEMIA
     Dosage: 400 MG, QD
     Route: 065
     Dates: start: 200401
  2. IMATINIB [Suspect]
     Active Substance: IMATINIB
     Dosage: 400 MG
     Route: 065
  3. IMATINIB [Suspect]
     Active Substance: IMATINIB
     Dosage: 600 MG, QD
     Route: 065
     Dates: start: 200601

REACTIONS (6)
  - Acute myeloid leukaemia [Unknown]
  - Myelodysplastic syndrome [Unknown]
  - Cytogenetic analysis abnormal [Unknown]
  - Blast cells present [Unknown]
  - Gene mutation identification test positive [Unknown]
  - Leukaemia recurrent [Unknown]
